FAERS Safety Report 18585760 (Version 3)
Quarter: 2020Q4

REPORT INFORMATION
  Report Type: Spontaneous
  Country: OM (occurrence: OM)
  Receive Date: 20201207
  Receipt Date: 20201224
  Transmission Date: 20210114
  Serious: Yes (Other)
  Sender: FDA-Public Use
  Company Number: NVSC2020OM322885

PATIENT
  Sex: Female

DRUGS (3)
  1. FINGOLIMOD. [Concomitant]
     Active Substance: FINGOLIMOD
     Indication: PRODUCT USED FOR UNKNOWN INDICATION
     Route: 065
  2. SANDOSTATIN [Concomitant]
     Active Substance: OCTREOTIDE ACETATE
     Indication: PRODUCT USED FOR UNKNOWN INDICATION
     Route: 065
  3. GILENYA [Suspect]
     Active Substance: FINGOLIMOD HYDROCHLORIDE
     Indication: MULTIPLE SCLEROSIS
     Dosage: 0.5 MG
     Route: 048
     Dates: start: 2014

REACTIONS (5)
  - Cataract [Unknown]
  - Visual impairment [Unknown]
  - Visual acuity reduced [Unknown]
  - Vision blurred [Unknown]
  - Migraine [Unknown]

NARRATIVE: CASE EVENT DATE: 201805
